FAERS Safety Report 21590836 (Version 1)
Quarter: 2022Q4

REPORT INFORMATION
  Report Type: Spontaneous
  Country: DE (occurrence: DE)
  Receive Date: 20221114
  Receipt Date: 20221114
  Transmission Date: 20230112
  Serious: Yes (Other)
  Sender: FDA-Public Use
  Company Number: DE-002147023-NVSC2022DE252477

PATIENT

DRUGS (3)
  1. ASPIRIN [Suspect]
     Active Substance: ASPIRIN
     Indication: NSAID exacerbated respiratory disease
     Dosage: UNK, QD
     Route: 048
  2. ACETAMINOPHEN [Concomitant]
     Active Substance: ACETAMINOPHEN
     Indication: NSAID exacerbated respiratory disease
     Dosage: 500 MG (ON THE FIRST DAY)
     Route: 048
  3. CORTISOL [Concomitant]
     Active Substance: HYDROCORTISONE
     Indication: NSAID exacerbated respiratory disease
     Dosage: UNK
     Route: 045

REACTIONS (2)
  - Haemorrhage [Unknown]
  - Product use in unapproved indication [Unknown]
